FAERS Safety Report 8957090 (Version 2)
Quarter: 2012Q4

REPORT INFORMATION
  Report Type: 
  Country: JP (occurrence: US)
  Receive Date: 20121210
  Receipt Date: 20121224
  Transmission Date: 20130627
  Serious: No
  Sender: FDA-Public Use
  Company Number: US-009507513-1212USA003217

PATIENT

DRUGS (3)
  1. RIBAVIRIN [Suspect]
     Indication: HEPATITIS C
     Route: 048
  2. DACLATASVIR [Suspect]
     Indication: HEPATITIS C
     Dosage: 60 mg, qd
  3. PEGINTERFERON ALFA-2A [Suspect]
     Indication: HEPATITIS C

REACTIONS (1)
  - Drug ineffective [Unknown]
